FAERS Safety Report 5002945-0 (Version None)
Quarter: 2006Q2

REPORT INFORMATION
  Report Type: 
  Country: None (occurrence: None)
  Receive Date: 20060516
  Receipt Date: 20060420
  Transmission Date: 20061013
  Serious: Yes (Hospitalization)
  Sender: FDA-Public Use
  Company Number: JP-JPN-A200601315

PATIENT
  Age: 41 Year
  Sex: Male
  Weight: 69 kg

DRUGS (8)
  1. PAXIL [Suspect]
     Indication: OBSESSIVE-COMPULSIVE DISORDER
     Route: 048
     Dates: start: 20060322
  2. SEROQUEL [Concomitant]
     Dosage: 25MG THREE TIMES PER DAY
     Route: 048
  3. SEROQUEL [Concomitant]
     Dosage: 100MG PER DAY
     Route: 048
  4. ACINON [Concomitant]
     Dosage: 150MG TWICE PER DAY
     Route: 048
  5. LEXOTAN [Concomitant]
     Dosage: 2MG THREE TIMES PER DAY
     Route: 048
  6. PANTOSIN [Concomitant]
     Dosage: 1.5G THREE TIMES PER DAY
     Route: 048
  7. RIVOTRIL [Concomitant]
     Dosage: .5MG TWICE PER DAY
     Route: 048
  8. ROHYPNOL [Concomitant]
     Dosage: 2MG PER DAY
     Route: 048

REACTIONS (10)
  - ANOREXIA [None]
  - DECREASED APPETITE [None]
  - GASTROINTESTINAL DISORDER [None]
  - HEAD TITUBATION [None]
  - MALAISE [None]
  - MUSCLE RIGIDITY [None]
  - MYALGIA [None]
  - NAUSEA [None]
  - PARKINSONISM [None]
  - TREMOR [None]
